FAERS Safety Report 11780406 (Version 1)
Quarter: 2015Q4

REPORT INFORMATION
  Report Type: Spontaneous
  Country: US (occurrence: US)
  Receive Date: 20151126
  Receipt Date: 20151126
  Transmission Date: 20160305
  Serious: No
  Sender: FDA-Public Use
  Company Number: US-JNJFOC-20151018710

PATIENT
  Age: 39 Year
  Sex: Male
  Weight: 90.72 kg

DRUGS (2)
  1. MOTRIN [Suspect]
     Active Substance: IBUPROFEN
     Route: 048
  2. MOTRIN [Suspect]
     Active Substance: IBUPROFEN
     Indication: PRODUCT USED FOR UNKNOWN INDICATION
     Dosage: FEW DROPS
     Route: 048

REACTIONS (2)
  - Burning sensation [Recovered/Resolved]
  - Product use issue [Recovered/Resolved]
